FAERS Safety Report 8036054-3 (Version None)
Quarter: 2012Q1

REPORT INFORMATION
  Report Type: 
  Country: None (occurrence: None)
  Receive Date: 20120111
  Receipt Date: 20120102
  Transmission Date: 20120608
  Serious: Yes (Death, Other)
  Sender: FDA-Public Use
  Company Number: DE-CELGENEUS-062-21660-11120257

PATIENT
  Sex: Female

DRUGS (2)
  1. ABRAXANE [Suspect]
     Indication: BREAST CANCER
     Route: 041
  2. XELODA [Suspect]
     Indication: BREAST CANCER
     Route: 065

REACTIONS (1)
  - CARDIAC FAILURE [None]
